FAERS Safety Report 7274774-9 (Version None)
Quarter: 2011Q1

REPORT INFORMATION
  Report Type: 
  Country: None (occurrence: None)
  Receive Date: 20110202
  Receipt Date: 20110202
  Transmission Date: 20110831
  Serious: No
  Sender: FDA-Public Use
  Company Number: None

PATIENT

DRUGS (1)
  1. RECLAST [Suspect]
     Indication: OSTEOPOROSIS
     Dates: start: 20101203

REACTIONS (7)
  - DYSPNOEA [None]
  - CHEST PAIN [None]
  - URINARY INCONTINENCE [None]
  - MUSCULOSKELETAL PAIN [None]
  - BACK PAIN [None]
  - CHILLS [None]
  - PAIN IN EXTREMITY [None]
